FAERS Safety Report 12501872 (Version 2)
Quarter: 2016Q2

REPORT INFORMATION
  Report Type: Report from Study
  Country: US (occurrence: US)
  Receive Date: 20160627
  Receipt Date: 20160629
  Transmission Date: 20160815
  Serious: Yes (Other)
  Sender: FDA-Public Use
  Company Number: US-GILEAD-2016-0220246

PATIENT
  Age: 31 Year
  Sex: Male

DRUGS (1)
  1. TENOFOVIR DISOPROXIL FUMARATE. [Suspect]
     Active Substance: TENOFOVIR DISOPROXIL FUMARATE
     Indication: HEPATITIS B
     Dosage: 300 MG, UNK
     Route: 048
     Dates: end: 20160620

REACTIONS (6)
  - Ocular icterus [Unknown]
  - Hepatic pain [Unknown]
  - Drug dose omission [Unknown]
  - Abdominal pain upper [Unknown]
  - Hepatic failure [Not Recovered/Not Resolved]
  - Jaundice [Unknown]
